FAERS Safety Report 5956407-4 (Version None)
Quarter: 2008Q4

REPORT INFORMATION
  Report Type: 
  Country: None (occurrence: None)
  Receive Date: 20081118
  Receipt Date: 20081110
  Transmission Date: 20090506
  Serious: Yes (Hospitalization)
  Sender: FDA-Public Use
  Company Number: JP-AVENTIS-200812243JP

PATIENT
  Age: 59 Year
  Sex: Male

DRUGS (10)
  1. LASIX [Suspect]
     Route: 041
     Dates: start: 20080707, end: 20080718
  2. LASIX [Suspect]
     Route: 041
     Dates: start: 20080719, end: 20080722
  3. FOSCAVIR [Suspect]
     Indication: CYTOMEGALOVIRUS INFECTION
     Route: 042
     Dates: start: 20080705, end: 20080718
  4. PANSPORIN [Suspect]
     Indication: BACTERIAL INFECTION
     Route: 042
     Dates: start: 20080715, end: 20080717
  5. FUNGUARD [Suspect]
     Indication: FUNGAL INFECTION
     Route: 042
     Dates: start: 20080716, end: 20080717
  6. COTRIM [Suspect]
     Indication: BACTERIAL INFECTION
     Dosage: DOSE: 1 TABLET
     Route: 048
     Dates: end: 20080719
  7. SELBEX [Suspect]
     Indication: PROPHYLAXIS
     Route: 048
     Dates: start: 20080705, end: 20080718
  8. ASPARA K                           /00466902/ [Suspect]
     Route: 048
     Dates: start: 20080516, end: 20080723
  9. ALFAROL [Suspect]
     Indication: OSTEOPOROSIS
     Route: 048
     Dates: start: 20080520
  10. RESPLEN [Suspect]
     Route: 048
     Dates: start: 20080715, end: 20080722

REACTIONS (1)
  - STEVENS-JOHNSON SYNDROME [None]
